FAERS Safety Report 21014824 (Version 1)
Quarter: 2022Q2

REPORT INFORMATION
  Report Type: Spontaneous
  Country: US (occurrence: US)
  Receive Date: 20220628
  Receipt Date: 20220628
  Transmission Date: 20220720
  Serious: No
  Sender: FDA-Public Use
  Company Number: US-NOVITIUMPHARMA-2022USNVP00080

PATIENT
  Age: 70 Year
  Sex: Male
  Weight: 77.11 kg

DRUGS (7)
  1. TRIHEXYPHENIDYL [Suspect]
     Active Substance: TRIHEXYPHENIDYL
     Indication: Parkinson^s disease
  2. PAXLOVID [Concomitant]
     Active Substance: NIRMATRELVIR\RITONAVIR
     Indication: COVID-19
     Dosage: 3 PILLS; 2 ARE 150MG OF NIRRNATRELVIR AND 1 IS 100MG OF RLTONAVIR TABLETS
     Route: 048
     Dates: start: 20220516
  3. Cardidopa/Levo [Concomitant]
     Indication: Parkinson^s disease
     Dosage: 25/100
  4. Cardidopa/levodopa ER [Concomitant]
     Indication: Parkinson^s disease
     Dosage: 50/200
  5. Propranolol HCL ER [Concomitant]
     Indication: Parkinson^s disease
  6. AMANTADINE [Concomitant]
     Active Substance: AMANTADINE
     Indication: Parkinson^s disease
  7. Esometrazole Meg DR [Concomitant]
     Indication: Gastrooesophageal reflux disease

REACTIONS (1)
  - Drug ineffective [Unknown]
